FAERS Safety Report 6124074-5 (Version None)
Quarter: 2009Q1

REPORT INFORMATION
  Report Type: 
  Country: None (occurrence: None)
  Receive Date: 20090319
  Receipt Date: 20090311
  Transmission Date: 20090719
  Serious: Yes (Other)
  Sender: FDA-Public Use
  Company Number: PHHY2009BR09231

PATIENT
  Sex: Male

DRUGS (2)
  1. RASILEZ [Suspect]
     Indication: BLOOD PRESSURE DECREASED
     Route: 048
  2. LOSARTAN [Concomitant]

REACTIONS (2)
  - DIALYSIS [None]
  - RENAL IMPAIRMENT [None]
